FAERS Safety Report 6017210-2 (Version None)
Quarter: 2008Q4

REPORT INFORMATION
  Report Type: 
  Country: None (occurrence: None)
  Receive Date: 20081223
  Receipt Date: 20081210
  Transmission Date: 20090506
  Serious: Yes (Hospitalization)
  Sender: FDA-Public Use
  Company Number: US-ROCHE-496808

PATIENT
  Sex: Male
  Weight: 68.6 kg

DRUGS (14)
  1. PEG-INTERFERON ALFA 2A (RO 25-8310) [Suspect]
     Indication: HEPATITIS C
     Route: 058
     Dates: start: 20070326, end: 20070426
  2. RIBAVIRIN [Suspect]
     Indication: HEPATITIS C
     Route: 048
     Dates: start: 20070326, end: 20070426
  3. BLINDED VX-950 [Suspect]
     Indication: HEPATITIS C
     Dosage: DOSAGE BLINDED.
     Route: 048
     Dates: start: 20070326, end: 20070426
  4. PROZAC [Concomitant]
     Indication: DEPRESSION
     Route: 048
     Dates: start: 20070413
  5. TRAZODONE [Concomitant]
     Indication: INSOMNIA
     Route: 048
     Dates: start: 20010101
  6. CALCIUM [Concomitant]
     Indication: MINERAL SUPPLEMENTATION
     Route: 048
  7. HYDROCODONE BITARTRATE [Concomitant]
     Indication: MYALGIA
     Dosage: OTHER INDICATION: ARTHRALGIA.
     Route: 048
     Dates: start: 20050301, end: 20070401
  8. HYDROCODONE BITARTRATE [Concomitant]
     Dosage: THERAPY STOP DATE: 1 APRIL 2007.
     Route: 048
     Dates: start: 20070401
  9. FLUOXETINE [Concomitant]
     Indication: DEPRESSION
     Dates: start: 20050301, end: 20070413
  10. FLUOXETINE [Concomitant]
     Dates: start: 20070413, end: 20070509
  11. OXYCONTIN [Concomitant]
     Indication: MYALGIA
     Dosage: OTHER INDICATION: ARTHRALGIA.
     Route: 048
     Dates: start: 20060501, end: 20070401
  12. IBUPROFEN [Concomitant]
     Indication: MYALGIA
     Dosage: OTHE INDICATION: ARTHRALGIA.
     Route: 048
     Dates: start: 20061201
  13. ZETIA [Concomitant]
     Route: 048
     Dates: start: 20070222
  14. PRILOSEC [Concomitant]
     Route: 048

REACTIONS (2)
  - DEHYDRATION [None]
  - DEPRESSION [None]
